FAERS Safety Report 25249829 (Version 2)
Quarter: 2025Q3

REPORT INFORMATION
  Report Type: Spontaneous
  Country: US (occurrence: US)
  Receive Date: 20250429
  Receipt Date: 20250725
  Transmission Date: 20251021
  Serious: Yes (Other)
  Sender: Karo Pharma
  Company Number: US-Karo Pharma-2175619

PATIENT
  Age: 50 Year
  Weight: 129.27 kg

DRUGS (17)
  1. TERBINAFINE [Suspect]
     Active Substance: TERBINAFINE
     Indication: Product used for unknown indication
  2. TERBINAFINE [Suspect]
     Active Substance: TERBINAFINE
     Indication: Psoriasis
  3. CLONIDINE [Suspect]
     Active Substance: CLONIDINE
  4. COSENTYX [Suspect]
     Active Substance: SECUKINUMAB
  5. BUPROPION [Suspect]
     Active Substance: BUPROPION
  6. VALACYCLOVIR [Suspect]
     Active Substance: VALACYCLOVIR HYDROCHLORIDE
  7. ATORVASTATIN [Suspect]
     Active Substance: ATORVASTATIN
  8. OMEPRAZOLE [Suspect]
     Active Substance: OMEPRAZOLE
  9. MELATONIN [Suspect]
     Active Substance: MELATONIN
  10. LORAZEPAM [Suspect]
     Active Substance: LORAZEPAM
  11. ALBUTEROL SULFATE [Suspect]
     Active Substance: ALBUTEROL SULFATE
  12. OLANZAPINE [Suspect]
     Active Substance: OLANZAPINE
  13. CYCLOBENZAPRINE [Suspect]
     Active Substance: CYCLOBENZAPRINE
  14. TERBINAFINE [Suspect]
     Active Substance: TERBINAFINE
  15. NARATRIPTAN [Suspect]
     Active Substance: NARATRIPTAN HYDROCHLORIDE
  16. ONDANSETRON [Suspect]
     Active Substance: ONDANSETRON
  17. SPIRONOLACTONE [Suspect]
     Active Substance: SPIRONOLACTONE

REACTIONS (8)
  - Hidradenitis [Unknown]
  - Dermoid cyst [Unknown]
  - Wound [Unknown]
  - Impaired healing [Unknown]
  - Chloasma [Unknown]
  - Wound complication [Unknown]
  - Inflammation [Unknown]
  - Xerosis [Unknown]
